FAERS Safety Report 15496992 (Version 1)
Quarter: 2018Q4

REPORT INFORMATION
  Report Type: Report from Study
  Country: None (occurrence: DE)
  Receive Date: 20181015
  Receipt Date: 20181015
  Transmission Date: 20190205
  Serious: Yes (Disabling, Other)
  Sender: FDA-Public Use
  Company Number: DE-ABBVIE-18K-062-2514253-00

PATIENT
  Sex: Female

DRUGS (4)
  1. PREDNISOLONE. [Suspect]
     Active Substance: PREDNISOLONE
     Indication: INTESTINAL HAEMORRHAGE
     Dosage: GRADUALLY REDUCED FROM 60 MG TO 5 MG
     Route: 065
     Dates: start: 20180703, end: 20180929
  2. HUMIRA [Suspect]
     Active Substance: ADALIMUMAB
     Indication: COLITIS ULCERATIVE
     Route: 058
     Dates: end: 20180908
  3. HUMIRA [Suspect]
     Active Substance: ADALIMUMAB
     Indication: CROHN^S DISEASE
     Route: 058
     Dates: start: 20181006
  4. HUMIRA [Suspect]
     Active Substance: ADALIMUMAB
     Indication: RHEUMATOID ARTHRITIS

REACTIONS (7)
  - Oral pain [Recovering/Resolving]
  - Intestinal haemorrhage [Recovered/Resolved]
  - Coeliac disease [Not Recovered/Not Resolved]
  - Skin papilloma [Not Recovered/Not Resolved]
  - Oral herpes [Recovering/Resolving]
  - Rash macular [Recovered/Resolved]
  - Oral fungal infection [Recovering/Resolving]

NARRATIVE: CASE EVENT DATE: 201710
